FAERS Safety Report 8495183-0 (Version None)
Quarter: 2012Q3

REPORT INFORMATION
  Report Type: 
  Country: None (occurrence: None)
  Receive Date: 20120702
  Receipt Date: 20120702
  Transmission Date: 20120928
  Serious: Yes (Life-Threatening, Hospitalization)
  Sender: FDA-Public Use
  Company Number: None

PATIENT
  Age: 83 Year
  Sex: Male
  Weight: 84.8 kg

DRUGS (4)
  1. AMIODARONE HCL [Concomitant]
  2. RIVAROXABAN 20 MG JANSSEN [Suspect]
     Indication: ATRIAL FIBRILLATION
     Dates: start: 20120621, end: 20120626
  3. DIGOXIN [Concomitant]
  4. ASPIRIN [Concomitant]

REACTIONS (6)
  - NAUSEA [None]
  - ASTHENIA [None]
  - HYPERHIDROSIS [None]
  - ATRIAL FIBRILLATION [None]
  - DYSPNOEA [None]
  - MELAENA [None]
